FAERS Safety Report 6902202-9 (Version None)
Quarter: 2010Q3

REPORT INFORMATION
  Report Type: 
  Country: None (occurrence: None)
  Receive Date: 20100803
  Receipt Date: 20080428
  Transmission Date: 20110219
  Serious: Yes (Other)
  Sender: FDA-Public Use
  Company Number: US-PFIZER INC-2008037457

PATIENT
  Sex: Female
  Weight: 108.9 kg

DRUGS (1)
  1. LYRICA [Suspect]
     Indication: NEURALGIA
     Dates: start: 20070801, end: 20080301

REACTIONS (2)
  - FLUID RETENTION [None]
  - WEIGHT INCREASED [None]
